FAERS Safety Report 25276141 (Version 3)
Quarter: 2025Q2

REPORT INFORMATION
  Report Type: Spontaneous
  Country: JP (occurrence: JP)
  Receive Date: 20250507
  Receipt Date: 20250630
  Transmission Date: 20250716
  Serious: Yes (Hospitalization, Other)
  Sender: TAKEDA
  Company Number: JP-TAKEDA-2025TJP004290

PATIENT
  Age: 9 Decade
  Sex: Male

DRUGS (7)
  1. NINLARO [Suspect]
     Active Substance: IXAZOMIB CITRATE
     Indication: Plasma cell myeloma
     Dates: start: 20241004, end: 20250404
  2. RABEPRAZOLE SODIUM [Concomitant]
     Active Substance: RABEPRAZOLE SODIUM
  3. DAYVIGO [Concomitant]
     Active Substance: LEMBOREXANT
  4. ATOVAQUONE [Concomitant]
     Active Substance: ATOVAQUONE
  5. ACYCLOVIR [Concomitant]
     Active Substance: ACYCLOVIR
  6. FEBUXOSTAT [Concomitant]
     Active Substance: FEBUXOSTAT
  7. ENTRESTO [Concomitant]
     Active Substance: SACUBITRIL\VALSARTAN

REACTIONS (1)
  - Cardiac failure acute [Recovered/Resolved]

NARRATIVE: CASE EVENT DATE: 20250427
